FAERS Safety Report 7245417-5 (Version None)
Quarter: 2011Q1

REPORT INFORMATION
  Report Type: 
  Country: None (occurrence: None)
  Receive Date: 20110126
  Receipt Date: 20110114
  Transmission Date: 20110831
  Serious: Yes (Hospitalization)
  Sender: FDA-Public Use
  Company Number: US-ALEXION-A201100031

PATIENT
  Sex: Female

DRUGS (2)
  1. SOLIRIS [Suspect]
     Indication: PAROXYSMAL NOCTURNAL HAEMOGLOBINURIA
     Dosage: UNK
     Route: 042
     Dates: start: 20070522
  2. SOLIRIS [Suspect]
     Dosage: 900 MG, Q2W
     Route: 042

REACTIONS (13)
  - DIARRHOEA [None]
  - NEISSERIA INFECTION [None]
  - HAEMOGLOBIN DECREASED [None]
  - LIVER PALPABLE SUBCOSTAL [None]
  - BLOOD LACTATE DEHYDROGENASE INCREASED [None]
  - NAUSEA [None]
  - VOMITING [None]
  - PYELONEPHRITIS [None]
  - URINE COLOUR ABNORMAL [None]
  - CYTOMEGALOVIRUS VIRAEMIA [None]
  - FATIGUE [None]
  - FLANK PAIN [None]
  - HAEMOLYSIS [None]
